FAERS Safety Report 5802080-5 (Version None)
Quarter: 2008Q3

REPORT INFORMATION
  Report Type: 
  Country: None (occurrence: None)
  Receive Date: 20080707
  Receipt Date: 20080625
  Transmission Date: 20090109
  Serious: Yes (Other)
  Sender: FDA-Public Use
  Company Number: PHBS2006JP18109

PATIENT
  Sex: Female

DRUGS (3)
  1. AREDIA [Suspect]
     Indication: METASTASES TO BONE
     Dosage: 90 MG, UNK
     Route: 042
     Dates: start: 20050601, end: 20060703
  2. ZOMETA [Suspect]
     Indication: METASTASES TO BONE
     Dosage: 4 MG, UNK
     Route: 042
     Dates: start: 20060814, end: 20061106
  3. CHEMOTHERAPEUTICS,OTHER [Suspect]
     Route: 065

REACTIONS (6)
  - ABSCESS [None]
  - BONE DISORDER [None]
  - IMPAIRED HEALING [None]
  - OSTEOMYELITIS [None]
  - SEQUESTRECTOMY [None]
  - TOOTH EXTRACTION [None]
